FAERS Safety Report 11528971 (Version 1)
Quarter: 2015Q3

REPORT INFORMATION
  Report Type: Spontaneous
  Country: US (occurrence: None)
  Receive Date: 20150918
  Receipt Date: 20150918
  Transmission Date: 20151125
  Serious: Yes (Other)
  Sender: FDA-Public Use
  Company Number: None

PATIENT
  Age: 77 Year
  Sex: Male
  Weight: 104.33 kg

DRUGS (11)
  1. MINOXIDIL. [Concomitant]
     Active Substance: MINOXIDIL
  2. ATORVASTATIN [Concomitant]
     Active Substance: ATORVASTATIN
  3. LISINOPRIL. [Concomitant]
     Active Substance: LISINOPRIL
  4. FUROSEMIDE. [Concomitant]
     Active Substance: FUROSEMIDE
  5. LUCENTIS SHOT [Concomitant]
  6. PROLIA [Suspect]
     Active Substance: DENOSUMAB
     Indication: OSTEOPENIA
     Dosage: 1 SHOT 6 MONTHS
     Route: 030
     Dates: start: 20150810
  7. POTASSIUM CHLORIDE. [Concomitant]
     Active Substance: POTASSIUM CHLORIDE
  8. FENOFIBRATE. [Concomitant]
     Active Substance: FENOFIBRATE
  9. PROLIA [Suspect]
     Active Substance: DENOSUMAB
     Indication: HYPERPARATHYROIDISM
     Dosage: 1 SHOT 6 MONTHS
     Route: 030
     Dates: start: 20150810
  10. SENSIPAR [Concomitant]
     Active Substance: CINACALCET HYDROCHLORIDE
  11. BRIMONIMIDE [Concomitant]

REACTIONS (5)
  - Gait disturbance [None]
  - Bone pain [None]
  - Myalgia [None]
  - Insomnia [None]
  - Arthralgia [None]

NARRATIVE: CASE EVENT DATE: 20150810
